FAERS Safety Report 10061165 (Version 5)
Quarter: 2014Q2

REPORT INFORMATION
  Report Type: Spontaneous
  Country: ES (occurrence: ES)
  Receive Date: 20140407
  Receipt Date: 20140527
  Transmission Date: 20141212
  Serious: Yes (Other)
  Sender: FDA-Public Use
  Company Number: ES-AMGEN INC.-ESPSP2014018164

PATIENT
  Age: 61 Year
  Sex: Male

DRUGS (9)
  1. ENBREL [Suspect]
     Indication: RHEUMATOID ARTHRITIS
     Dosage: 50 MG, WEEKLY
     Route: 065
     Dates: end: 201405
  2. METHOTREXATE SODIUM [Suspect]
     Indication: RHEUMATOID ARTHRITIS
     Dosage: 15 MG, WEEKLY
     Route: 065
  3. INDONILO [Concomitant]
     Indication: RHEUMATOID ARTHRITIS
     Dosage: 1 TABLET PER DAY
  4. PARACETAMOL [Concomitant]
     Indication: RHEUMATOID ARTHRITIS
     Dosage: 1 G OR 2 G, DAILY AS NEEDED
  5. ATENOLOL [Concomitant]
     Indication: ACUTE MYOCARDIAL INFARCTION
     Dosage: 50 MG, DAILY
  6. ADIRO [Concomitant]
     Indication: ACUTE MYOCARDIAL INFARCTION
     Dosage: 100 MG, DAILY
  7. ATORVASTATIN [Concomitant]
     Indication: ACUTE MYOCARDIAL INFARCTION
     Dosage: 20 MG, DAILY
  8. IRBESARTAN [Concomitant]
     Indication: HYPERTENSION
     Dosage: 150 MG, AS NEEDED (DEPENDING ON THE HYPERTENSION ARTERIAL VALUES)
  9. PREDNISONE [Concomitant]
     Indication: RHEUMATOID ARTHRITIS
     Dosage: 5 MG, DAILY

REACTIONS (4)
  - Rheumatoid arthritis [Unknown]
  - Pain in extremity [Unknown]
  - Blood uric acid increased [Unknown]
  - Rheumatoid factor decreased [Unknown]
